FAERS Safety Report 15379189 (Version 1)
Quarter: 2018Q3

REPORT INFORMATION
  Report Type: Spontaneous
  Country: US (occurrence: US)
  Receive Date: 20180906
  Receipt Date: 20180906
  Transmission Date: 20181010
  Serious: No
  Sender: FDA-Public Use
  Company Number: None

PATIENT
  Age: 10 Year
  Sex: Male

DRUGS (1)
  1. NORDITROPIN [Suspect]
     Active Substance: SOMATROPIN
     Indication: DRUG THERAPY
     Dates: start: 201806

REACTIONS (2)
  - Hair growth abnormal [None]
  - Hyperhidrosis [None]

NARRATIVE: CASE EVENT DATE: 20180805
